FAERS Safety Report 7337203-2 (Version None)
Quarter: 2011Q1

REPORT INFORMATION
  Report Type: 
  Country: None (occurrence: None)
  Receive Date: 20110308
  Receipt Date: 20110228
  Transmission Date: 20110831
  Serious: No
  Sender: FDA-Public Use
  Company Number: US-PFIZER INC-2010141658

PATIENT
  Sex: Female

DRUGS (6)
  1. HYDROCHLOROTHIAZIDE [Concomitant]
     Indication: HYPERTENSION
     Dosage: 25 MG, 1X/DAY
     Route: 048
  2. XALATAN [Suspect]
     Indication: GLAUCOMA
     Dosage: 1 GTT, 1X/DAY, IN EACH EYE
     Route: 047
     Dates: start: 20100326
  3. QUINAPRIL [Concomitant]
     Indication: HYPERTENSION
     Dosage: 40 MG, 1X/DAY
     Route: 048
  4. SIMVASTATIN [Concomitant]
     Indication: BLOOD CHOLESTEROL ABNORMAL
     Dosage: 40 MG, 1X/DAY
     Route: 048
  5. XALATAN [Suspect]
     Indication: OCULAR HYPERTENSION
  6. SYSTANE [Concomitant]
     Dosage: UNK

REACTIONS (3)
  - SKIN DISCOLOURATION [None]
  - EYE IRRITATION [None]
  - SKIN LESION [None]
